FAERS Safety Report 11020551 (Version 2)
Quarter: 2015Q2

REPORT INFORMATION
  Report Type: Spontaneous
  Country: AT (occurrence: AT)
  Receive Date: 20150413
  Receipt Date: 20150428
  Transmission Date: 20150821
  Serious: Yes (Hospitalization, Other)
  Sender: FDA-Public Use
  Company Number: AT-ROCHE-1562701

PATIENT
  Sex: Male
  Weight: 54 kg

DRUGS (2)
  1. GAZYVARO [Suspect]
     Active Substance: OBINUTUZUMAB
     Indication: CHRONIC LYMPHOCYTIC LEUKAEMIA
     Dosage: THE LAST DOSE PRIOR TO SAE WAS ON 02/APR/2015
     Route: 042
     Dates: start: 20150402
  2. CHLORAMBUCIL [Suspect]
     Active Substance: CHLORAMBUCIL
     Indication: PRODUCT USED FOR UNKNOWN INDICATION
     Route: 048
     Dates: start: 20150402

REACTIONS (5)
  - Disorientation [Recovering/Resolving]
  - Tumour lysis syndrome [Unknown]
  - Amnesia [Unknown]
  - Pyrexia [Recovering/Resolving]
  - Aggression [Unknown]
